FAERS Safety Report 22009580 (Version 2)
Quarter: 2023Q1

REPORT INFORMATION
  Report Type: Spontaneous
  Country: DE (occurrence: DE)
  Receive Date: 20230220
  Receipt Date: 20230220
  Transmission Date: 20230418
  Serious: Yes (Other)
  Sender: FDA-Public Use
  Company Number: DE-JNJFOC-20230224266

PATIENT
  Age: 52 Year
  Sex: Female

DRUGS (1)
  1. PONVORY [Suspect]
     Active Substance: PONESIMOD
     Indication: Multiple sclerosis
     Route: 048
     Dates: start: 20221002

REACTIONS (1)
  - Myopic chorioretinal degeneration [Not Recovered/Not Resolved]

NARRATIVE: CASE EVENT DATE: 20230208
